FAERS Safety Report 11524289 (Version 1)
Quarter: 2015Q3

REPORT INFORMATION
  Report Type: Spontaneous
  Country: US (occurrence: US)
  Receive Date: 20150903
  Receipt Date: 20150903
  Transmission Date: 20151125
  Serious: No
  Sender: FDA-Public Use
  Company Number: US-ELI_LILLY_AND_COMPANY-US200906002101

PATIENT
  Sex: Male

DRUGS (14)
  1. METOPROLOL [Concomitant]
     Active Substance: METOPROLOL
  2. FUROSEMIDE. [Concomitant]
     Active Substance: FUROSEMIDE
  3. LANTUS [Concomitant]
     Active Substance: INSULIN GLARGINE
  4. CENTRUM SILVER [Concomitant]
     Active Substance: VITAMINS
  5. VESICARE [Concomitant]
     Active Substance: SOLIFENACIN SUCCINATE
  6. ASPIRIN. [Concomitant]
     Active Substance: ASPIRIN
  7. HUMALOG [Suspect]
     Active Substance: INSULIN LISPRO
     Indication: TYPE 2 DIABETES MELLITUS
     Dosage: UNK, AS NEEDED
     Dates: start: 1997
  8. GLUCOSAMINE [Concomitant]
     Active Substance: GLUCOSAMINE
  9. VITAMIN D [Concomitant]
     Active Substance: CHOLECALCIFEROL
  10. LIPITOR [Concomitant]
     Active Substance: ATORVASTATIN CALCIUM
  11. BENICAR [Concomitant]
     Active Substance: OLMESARTAN MEDOXOMIL
  12. FISH OIL [Concomitant]
     Active Substance: FISH OIL
  13. ENABLEX /01760401/ [Concomitant]
     Active Substance: DARIFENACIN\DARIFENACIN HYDROBROMIDE
  14. ALLOPURINOL. [Concomitant]
     Active Substance: ALLOPURINOL

REACTIONS (1)
  - Cataract [Recovered/Resolved]

NARRATIVE: CASE EVENT DATE: 1999
